FAERS Safety Report 22147334 (Version 3)
Quarter: 2023Q2

REPORT INFORMATION
  Report Type: Report from Study
  Country: RU (occurrence: RU)
  Receive Date: 20230328
  Receipt Date: 20230411
  Transmission Date: 20230722
  Serious: Yes (Death, Hospitalization, Other)
  Sender: FDA-Public Use
  Company Number: RU-SA-SAC20221207000880

PATIENT
  Age: 33 Year
  Sex: Female

DRUGS (2)
  1. ALEMTUZUMAB [Suspect]
     Active Substance: ALEMTUZUMAB
     Indication: Multiple sclerosis
     Dosage: UNK
     Route: 042
     Dates: start: 20221121, end: 20221121
  2. ALEMTUZUMAB [Suspect]
     Active Substance: ALEMTUZUMAB
     Dosage: UNK
     Route: 042
     Dates: start: 20211129, end: 20211203

REACTIONS (7)
  - Pneumonia acinetobacter [Fatal]
  - Condition aggravated [Fatal]
  - Body temperature increased [Fatal]
  - Anaemia [Unknown]
  - Endotoxaemia [Unknown]
  - Vasculitis [Unknown]
  - Respiratory tract infection viral [Recovered/Resolved]

NARRATIVE: CASE EVENT DATE: 20221122
